FAERS Safety Report 6293770-1 (Version None)
Quarter: 2009Q3

REPORT INFORMATION
  Report Type: 
  Country: None (occurrence: None)
  Receive Date: 20090803
  Receipt Date: 20090728
  Transmission Date: 20100115
  Serious: Yes (Hospitalization)
  Sender: FDA-Public Use
  Company Number: AU-AMGEN-US229578

PATIENT
  Sex: Male

DRUGS (6)
  1. PANITUMUMAB [Suspect]
     Indication: COLORECTAL CANCER
     Route: 042
     Dates: start: 20070515
  2. IRINOTECAN HCL [Suspect]
     Route: 065
  3. NORVASC [Concomitant]
     Route: 065
  4. ATENOLOL [Concomitant]
     Route: 065
  5. 5-FU [Concomitant]
     Route: 065
  6. LEUCOVORIN CALCIUM [Concomitant]
     Route: 065

REACTIONS (1)
  - CHOLINERGIC SYNDROME [None]
